FAERS Safety Report 24899255 (Version 1)
Quarter: 2025Q1

REPORT INFORMATION
  Report Type: Spontaneous
  Country: IT (occurrence: IT)
  Receive Date: 20250129
  Receipt Date: 20250129
  Transmission Date: 20250409
  Serious: Yes (Other)
  Sender: CHEPLAPHARM
  Company Number: IT-CHEPLA-2025001050

PATIENT
  Age: 51 Year
  Sex: Female

DRUGS (9)
  1. CAPECITABINE [Suspect]
     Active Substance: CAPECITABINE
     Indication: Breast cancer metastatic
     Dosage: FOR TWO WEEKS?DAILY DOSE: 1250 MILLIGRAM/M?
     Dates: start: 201902
  2. CAPECITABINE [Suspect]
     Active Substance: CAPECITABINE
     Indication: Breast cancer metastatic
     Dosage: ONGOING?DAILY DOSE: 1250 MILLIGRAM/M?
  3. TAMOXIFEN [Suspect]
     Active Substance: TAMOXIFEN
     Indication: Genital infection female
     Dosage: DAILY DOSE: 20 MILLIGRAM
     Route: 048
     Dates: start: 200505, end: 201001
  4. TAMOXIFEN [Suspect]
     Active Substance: TAMOXIFEN
     Indication: Gait disturbance
     Dosage: DAILY DOSE: 20 MILLIGRAM
     Route: 048
     Dates: start: 200505, end: 201001
  5. TAMOXIFEN [Suspect]
     Active Substance: TAMOXIFEN
     Indication: Breast cancer metastatic
     Dosage: DAILY DOSE: 20 MILLIGRAM
     Route: 048
     Dates: start: 200505, end: 201001
  6. TAMOXIFEN [Suspect]
     Active Substance: TAMOXIFEN
     Indication: Genital infection female
     Dates: start: 201902
  7. TAMOXIFEN [Suspect]
     Active Substance: TAMOXIFEN
     Indication: Gait disturbance
     Dates: start: 201902
  8. TAMOXIFEN [Suspect]
     Active Substance: TAMOXIFEN
     Indication: Breast cancer metastatic
     Dates: start: 201902
  9. DENOSUMAB [Suspect]
     Active Substance: DENOSUMAB
     Indication: Breast cancer metastatic
     Dates: start: 201710

REACTIONS (2)
  - Osteonecrosis of jaw [Unknown]
  - Palmar-plantar erythrodysaesthesia syndrome [Unknown]

NARRATIVE: CASE EVENT DATE: 20231101
